FAERS Safety Report 5406501-1 (Version None)
Quarter: 2007Q3

REPORT INFORMATION
  Report Type: 
  Country: None (occurrence: None)
  Receive Date: 20070806
  Receipt Date: 20070727
  Transmission Date: 20080115
  Serious: Yes (Hospitalization)
  Sender: FDA-Public Use
  Company Number: US-ABBOTT-07P-163-0376044-00

PATIENT
  Sex: Female
  Weight: 63.106 kg

DRUGS (2)
  1. HUMIRA [Suspect]
     Indication: RHEUMATOID ARTHRITIS
     Route: 058
     Dates: start: 20040101
  2. SERETIDE [Concomitant]
     Indication: ASTHMA
     Route: 048
     Dates: start: 20020101

REACTIONS (6)
  - COLITIS [None]
  - GASTRIC ULCER [None]
  - HEADACHE [None]
  - PETECHIAE [None]
  - RASH PAPULAR [None]
  - URTICARIA [None]
